FAERS Safety Report 5119102-X (Version None)
Quarter: 2006Q3

REPORT INFORMATION
  Report Type: 
  Country: None (occurrence: None)
  Receive Date: 20060925
  Receipt Date: 20060913
  Transmission Date: 20061208
  Serious: Yes (Hospitalization)
  Sender: FDA-Public Use
  Company Number: CAWYE864506SEP06

PATIENT
  Age: 50 Year
  Sex: Female

DRUGS (2)
  1. EFFEXOR XR [Suspect]
     Indication: ASTHENIA
     Dosage: 75 MG 1X PER 1 DAY ORAL; SEE IMAGE; SEVERAL YEARS
     Route: 048
     Dates: start: 20060701, end: 20060807
  2. METHIMAZOLE [Concomitant]

REACTIONS (7)
  - AMNESIA [None]
  - DRUG WITHDRAWAL SYNDROME [None]
  - FACIAL PARESIS [None]
  - GRAND MAL CONVULSION [None]
  - HYPOTONIA [None]
  - SPEECH DISORDER [None]
  - TINNITUS [None]
